FAERS Safety Report 15761642 (Version 1)
Quarter: 2018Q4

REPORT INFORMATION
  Report Type: Spontaneous
  Country: AR (occurrence: AR)
  Receive Date: 20181226
  Receipt Date: 20181226
  Transmission Date: 20190205
  Serious: Yes (Other)
  Sender: FDA-Public Use
  Company Number: AR-MYLANLABS-2018M1094800

PATIENT
  Age: 1 Year
  Sex: Male

DRUGS (2)
  1. CYTARABINE. [Suspect]
     Active Substance: CYTARABINE
     Indication: LANGERHANS^ CELL HISTIOCYTOSIS
     Route: 065
  2. CLADRIBINE. [Suspect]
     Active Substance: CLADRIBINE
     Indication: LANGERHANS^ CELL HISTIOCYTOSIS
     Route: 065

REACTIONS (1)
  - Drug ineffective [Unknown]
